FAERS Safety Report 6158540-3 (Version None)
Quarter: 2009Q2

REPORT INFORMATION
  Report Type: 
  Country: None (occurrence: None)
  Receive Date: 20090417
  Receipt Date: 20090414
  Transmission Date: 20091009
  Serious: Yes (Life-Threatening, Other)
  Sender: FDA-Public Use
  Company Number: PHEH2007US13089

PATIENT
  Sex: Female
  Weight: 79.819 kg

DRUGS (7)
  1. AREDIA [Suspect]
     Dosage: UNK
  2. ZOMETA [Suspect]
  3. ALKERAN [Concomitant]
     Dosage: UNK
     Dates: end: 19980101
  4. PREDNISONE [Concomitant]
     Dosage: UNK
     Dates: end: 19980101
  5. CHEMOTHERAPEUTICS NOS [Concomitant]
  6. COUMADIN [Concomitant]
  7. TYLENOL (CAPLET) [Concomitant]

REACTIONS (15)
  - ACTINOMYCOSIS [None]
  - BASAL CELL CARCINOMA [None]
  - BONE EROSION [None]
  - CENTRAL VENOUS CATHETERISATION [None]
  - DEFORMITY [None]
  - GASTROINTESTINAL HAEMORRHAGE [None]
  - INFECTION [None]
  - OSTEONECROSIS [None]
  - PAIN [None]
  - PANCYTOPENIA [None]
  - RENAL FAILURE [None]
  - RESPIRATORY FAILURE [None]
  - SEPTIC SHOCK [None]
  - STEM CELL TRANSPLANT [None]
  - TOOTH EXTRACTION [None]
